FAERS Safety Report 14295200 (Version 7)
Quarter: 2019Q1

REPORT INFORMATION
  Report Type: Spontaneous
  Country: US (occurrence: US)
  Receive Date: 20171218
  Receipt Date: 20190322
  Transmission Date: 20190417
  Serious: No
  Sender: FDA-Public Use
  Company Number: US-ASTRAZENECA-2017SF24964

PATIENT
  Sex: Female

DRUGS (3)
  1. TUDORZA PRESSAIR [Suspect]
     Active Substance: ACLIDINIUM BROMIDE
     Indication: BRONCHIECTASIS
     Dosage: 400 MCG 1 PUFF ONCE OR TWICE A DAY, AS NEEDED
     Route: 055
  2. TUDORZA PRESSAIR [Suspect]
     Active Substance: ACLIDINIUM BROMIDE
     Indication: BRONCHIECTASIS
     Dosage: 400 MCG, 1 PUFF ONCE DAILY
     Route: 055
  3. TUDORZA PRESSAIR [Suspect]
     Active Substance: ACLIDINIUM BROMIDE
     Indication: BRONCHIECTASIS
     Route: 055

REACTIONS (11)
  - Product quality issue [Unknown]
  - Chronic obstructive pulmonary disease [Unknown]
  - Circumstance or information capable of leading to medication error [Unknown]
  - Lung disorder [Unknown]
  - Product dose omission [Unknown]
  - Frustration tolerance decreased [Unknown]
  - Device failure [Unknown]
  - Off label use [Unknown]
  - Speech disorder [Unknown]
  - Cough [Unknown]
  - Intentional product misuse [Unknown]

NARRATIVE: CASE EVENT DATE: 20171211
